FAERS Safety Report 4926679-3 (Version None)
Quarter: 2006Q1

REPORT INFORMATION
  Report Type: 
  Country: None (occurrence: None)
  Receive Date: 20060228
  Receipt Date: 20060221
  Transmission Date: 20060701
  Serious: Yes (Death, Life-Threatening, Hospitalization, Disabling)
  Sender: FDA-Public Use
  Company Number: AT-JNJFOC-20040600020

PATIENT
  Sex: Male
  Weight: 64 kg

DRUGS (19)
  1. REMICADE [Suspect]
     Route: 042
  2. REMICADE [Suspect]
     Route: 042
  3. REMICADE [Suspect]
     Indication: ERYTHRODERMIC PSORIASIS
     Dosage: ONLY 2 REMICADE INFUSIONS ADMINISTERED.
     Route: 042
  4. PREDNISOLONE [Suspect]
     Route: 048
     Dates: end: 20030623
  5. PREDNISOLONE [Suspect]
     Route: 048
     Dates: end: 20030623
  6. PREDNISOLONE [Suspect]
     Route: 048
     Dates: end: 20030623
  7. PREDNISOLONE [Suspect]
     Indication: ERYTHRODERMIC PSORIASIS
     Route: 048
     Dates: end: 20030623
  8. OMEPRAZOLE [Concomitant]
     Indication: GASTRITIS
     Route: 048
     Dates: start: 20030610, end: 20030707
  9. WARFARIN SODIUM [Concomitant]
     Indication: ANTICOAGULANT THERAPY
     Dosage: 1/4 TABLET 3X DAILY.
     Route: 048
     Dates: start: 20020101, end: 20030707
  10. TRAMADOL HCL [Concomitant]
     Indication: PAIN
     Route: 048
     Dates: start: 20030704, end: 20030707
  11. BACITRACIN [Concomitant]
     Indication: HERPES ZOSTER
     Route: 061
  12. NEOMYCIN [Concomitant]
     Indication: HERPES ZOSTER
  13. FENTANYL CITRATE [Concomitant]
     Indication: NEURALGIA
  14. NEUROBION FORTE [Concomitant]
     Route: 048
     Dates: start: 20030704, end: 20030707
  15. NEUROBION FORTE [Concomitant]
     Route: 048
     Dates: start: 20030704, end: 20030707
  16. NEUROBION FORTE [Concomitant]
     Indication: PAIN
     Route: 048
     Dates: start: 20030704, end: 20030707
  17. NEURONTIN [Concomitant]
     Indication: PAIN
     Route: 048
     Dates: start: 20030615, end: 20030707
  18. SAROTEN [Concomitant]
     Indication: PAIN
     Route: 048
     Dates: start: 20030607, end: 20030707
  19. SERACTIL [Concomitant]
     Indication: PAIN
     Route: 048
     Dates: start: 20030607, end: 20030707

REACTIONS (5)
  - ACUTE RESPIRATORY DISTRESS SYNDROME [None]
  - CANDIDA PNEUMONIA [None]
  - MULTI-ORGAN FAILURE [None]
  - PNEUMONIA LEGIONELLA [None]
  - PSEUDOMONAS INFECTION [None]
